FAERS Safety Report 22256727 (Version 3)
Quarter: 2023Q2

REPORT INFORMATION
  Report Type: Spontaneous
  Country: US (occurrence: US)
  Receive Date: 20230426
  Receipt Date: 20230627
  Transmission Date: 20230722
  Serious: No
  Sender: FDA-Public Use
  Company Number: US-KARYOPHARM-2023KPT001108

PATIENT

DRUGS (2)
  1. XPOVIO [Suspect]
     Active Substance: SELINEXOR
     Indication: Plasma cell myeloma
     Dosage: 40 MG, WEEKLY
     Route: 048
     Dates: start: 20230311, end: 2023
  2. POMALYST [Concomitant]
     Active Substance: POMALIDOMIDE
     Dosage: 2 MG

REACTIONS (5)
  - Oropharyngeal pain [Unknown]
  - Joint swelling [Not Recovered/Not Resolved]
  - Peripheral swelling [Unknown]
  - Product dose omission issue [Unknown]
  - Drug ineffective [Unknown]

NARRATIVE: CASE EVENT DATE: 20230101
